FAERS Safety Report 8763844 (Version 3)
Quarter: 2013Q1

REPORT INFORMATION
  Report Type: Spontaneous
  Country: BR (occurrence: BR)
  Receive Date: 20120831
  Receipt Date: 20130318
  Transmission Date: 20140127
  Serious: Yes (Hospitalization, Other)
  Sender: FDA-Public Use
  Company Number: PHHY2012BR075063

PATIENT
  Sex: Male
  Weight: 51 kg

DRUGS (7)
  1. EXELON PATCH [Suspect]
     Indication: MEMORY IMPAIRMENT
     Dosage: 4.6 MG, DAILY
     Route: 062
     Dates: start: 2010
  2. EXELON PATCH [Suspect]
     Indication: DEMENTIA
  3. NOCTAL [Concomitant]
     Indication: INSOMNIA
     Dosage: 2 DF, QD
     Route: 048
  4. ROPINOL [Concomitant]
     Indication: INSOMNIA
     Dosage: 1 DF, QD
     Route: 048
  5. ATACAND [Concomitant]
     Indication: HYPERTENSION
     Dosage: 2 DF, QD
     Route: 048
  6. NATRILIX SR [Concomitant]
     Indication: HYPERTENSION
     Dosage: 1 DF, QD
     Route: 048
  7. SIMVASTATIN [Concomitant]
     Indication: DYSLIPIDAEMIA
     Dosage: 1 DF, QD (AT NIGHT)
     Route: 048

REACTIONS (1)
  - Chronic obstructive pulmonary disease [Recovered/Resolved]
